FAERS Safety Report 8474421-4 (Version None)
Quarter: 2012Q2

REPORT INFORMATION
  Report Type: 
  Country: None (occurrence: None)
  Receive Date: 20120628
  Receipt Date: 20120619
  Transmission Date: 20120825
  Serious: Yes (Life-Threatening, Hospitalization, Other)
  Sender: FDA-Public Use
  Company Number: PHHY2011JP13823

PATIENT
  Sex: Male

DRUGS (10)
  1. ALDACTONE [Concomitant]
     Dosage: 25 MG, UNK
     Route: 048
  2. LANIRAPID [Concomitant]
     Dosage: 0.05 MG, UNK
     Route: 048
  3. LASIX [Concomitant]
     Dosage: 20 MG, UNK
     Route: 048
  4. PROTECADIN [Concomitant]
     Dosage: 20 MG, UNK
     Route: 048
  5. ZYRTEC [Concomitant]
     Dosage: 10 MG, UNK
     Route: 048
  6. ASPIRIN [Concomitant]
     Dosage: 100 MG, UNK
     Route: 048
  7. TASIGNA [Suspect]
     Indication: CHRONIC MYELOID LEUKAEMIA
     Dosage: 200 MG, UNK
     Route: 048
  8. CIBENOL [Concomitant]
     Dosage: 300 MG, UNK
     Route: 048
  9. ALLOPURINOL [Concomitant]
     Dosage: 300 MG, UNK
     Route: 048
  10. BISOPROLOL FUMARATE [Concomitant]
     Dosage: 2.5 MG, UNK
     Route: 048

REACTIONS (4)
  - ANAEMIA [None]
  - SEPSIS [None]
  - URINARY TRACT INFECTION [None]
  - HYPOGLYCAEMIA [None]
